FAERS Safety Report 16425275 (Version 2)
Quarter: 2019Q2

REPORT INFORMATION
  Report Type: Spontaneous
  Country: CN (occurrence: CN)
  Receive Date: 20190613
  Receipt Date: 20190613
  Transmission Date: 20190711
  Serious: Yes (Other)
  Sender: FDA-Public Use
  Company Number: CN-BAYER-2019-108285

PATIENT
  Age: 55 Year
  Sex: Female
  Weight: 60 kg

DRUGS (4)
  1. AVELOX [Suspect]
     Active Substance: MOXIFLOXACIN HYDROCHLORIDE
     Indication: FEMALE GENITAL TRACT FISTULA
     Dosage: 400 MG, QD
     Route: 041
     Dates: start: 20190122, end: 20190127
  2. SODIUM CHLORIDE. [Concomitant]
     Active Substance: SODIUM CHLORIDE
  3. CEFTRIAXONE SODIUM. [Concomitant]
     Active Substance: CEFTRIAXONE SODIUM
  4. AVELOX [Suspect]
     Active Substance: MOXIFLOXACIN HYDROCHLORIDE
     Indication: ANTI-INFECTIVE THERAPY

REACTIONS (10)
  - Alanine aminotransferase increased [Recovering/Resolving]
  - Blood albumin decreased [Recovering/Resolving]
  - Blood uric acid decreased [Recovered/Resolved]
  - Drug-induced liver injury [Recovering/Resolving]
  - Aspartate aminotransferase increased [Recovering/Resolving]
  - Fatigue [None]
  - Blood urea decreased [Recovered/Resolved]
  - Chromaturia [Recovering/Resolving]
  - Albumin globulin ratio decreased [Recovering/Resolving]
  - Gamma-glutamyltransferase increased [Recovering/Resolving]

NARRATIVE: CASE EVENT DATE: 20190127
